FAERS Safety Report 9857009 (Version 5)
Quarter: 2020Q4

REPORT INFORMATION
  Report Type: Spontaneous
  Country: GB (occurrence: GB)
  Receive Date: 20140130
  Receipt Date: 20201201
  Transmission Date: 20210114
  Serious: Yes (Hospitalization, Other)
  Sender: FDA-Public Use
  Company Number: PHHY2014GB008676

PATIENT
  Age: 37 Year
  Sex: Female

DRUGS (4)
  1. LABETALOL [Suspect]
     Active Substance: LABETALOL\LABETALOL HYDROCHLORIDE
     Indication: GESTATIONAL HYPERTENSION
     Dosage: 100 MG, BID
     Route: 065
  2. SYNTOCINON [Suspect]
     Active Substance: OXYTOCIN
     Indication: LABOUR INDUCTION
     Dosage: UNK
     Route: 065
  3. TRANDATE [Suspect]
     Active Substance: LABETALOL HYDROCHLORIDE
     Indication: GESTATIONAL HYPERTENSION
     Dosage: 100 MG, BID
     Route: 065
  4. TRANDATE [Suspect]
     Active Substance: LABETALOL HYDROCHLORIDE
     Indication: BLOOD PRESSURE INCREASED

REACTIONS (6)
  - Breast pain [Recovered/Resolved]
  - Nipple pain [Recovered/Resolved]
  - Pain in extremity [Recovered/Resolved]
  - Raynaud^s phenomenon [Recovered/Resolved]
  - Skin discolouration [Recovered/Resolved]
  - Maternal exposure during pregnancy [Unknown]
